FAERS Safety Report 7274307-7 (Version None)
Quarter: 2011Q1

REPORT INFORMATION
  Report Type: 
  Country: None (occurrence: None)
  Receive Date: 20110131
  Receipt Date: 20110131
  Transmission Date: 20110831
  Serious: No
  Sender: FDA-Public Use
  Company Number: None

PATIENT
  Age: 61 Year
  Sex: Female

DRUGS (2)
  1. CYANOCOBALAMIN [Suspect]
     Indication: VITAMIN B12 DEFICIENCY
     Dosage: 1000 MCG MONTHLY IM
     Route: 030
     Dates: start: 20101013
  2. CYANOCOBALAMIN [Suspect]
     Indication: VITAMIN B12 DEFICIENCY
     Dosage: 1000 MCG MONTHLY IM
     Route: 030
     Dates: start: 20101115

REACTIONS (5)
  - FLUSHING [None]
  - FEELING HOT [None]
  - CHEST DISCOMFORT [None]
  - DYSGEUSIA [None]
  - UNEVALUABLE EVENT [None]
